FAERS Safety Report 4326525-5 (Version None)
Quarter: 2004Q1

REPORT INFORMATION
  Report Type: 
  Country: None (occurrence: None)
  Receive Date: 20040325
  Receipt Date: 20031001
  Transmission Date: 20041129
  Serious: Yes (Hospitalization)
  Sender: FDA-Public Use
  Company Number: US049836

PATIENT
  Age: 71 Year
  Sex: Female

DRUGS (2)
  1. NEUPOGEN [Suspect]
     Indication: CHEMOTHERAPY
     Dosage: 480 MCG, AFTER CHEMO
     Dates: start: 20030916
  2. VINORELBINE TARTRATE [Concomitant]

REACTIONS (1)
  - NEUTROPENIA [None]
